FAERS Safety Report 16101322 (Version 1)
Quarter: 2019Q1

REPORT INFORMATION
  Report Type: Spontaneous
  Country: RO (occurrence: RO)
  Receive Date: 20190321
  Receipt Date: 20190321
  Transmission Date: 20190418
  Serious: Yes (Other)
  Sender: FDA-Public Use
  Company Number: RO-PFIZER INC-2019121749

PATIENT
  Age: 42 Year
  Sex: Male
  Weight: 60 kg

DRUGS (3)
  1. SUTENT [Suspect]
     Active Substance: SUNITINIB MALATE
     Indication: METASTATIC RENAL CELL CARCINOMA
     Dosage: 50 MG, UNK
     Dates: start: 201401, end: 20190302
  2. EUTHYROX [Concomitant]
     Active Substance: LEVOTHYROXINE SODIUM
     Dosage: 50 MG, CYCLIC 5 DAYS ON TREATMENT AND 2 DAYS ON PAUSE
  3. DICARBOCALM [Concomitant]
     Dosage: UNK, AS NEEDED

REACTIONS (2)
  - Blood thyroid stimulating hormone increased [Unknown]
  - Hyperthyroidism [Unknown]

NARRATIVE: CASE EVENT DATE: 20190226
